FAERS Safety Report 6738792-9 (Version None)
Quarter: 2010Q2

REPORT INFORMATION
  Report Type: 
  Country: None (occurrence: None)
  Receive Date: 20100524
  Receipt Date: 20100518
  Transmission Date: 20101027
  Serious: Yes (Death)
  Sender: FDA-Public Use
  Company Number: ES-CELGENEUS-144-50794-10051435

PATIENT
  Age: 80 Year
  Sex: Male

DRUGS (1)
  1. VIDAZA [Suspect]
     Indication: CHRONIC MYELOMONOCYTIC LEUKAEMIA
     Route: 058
     Dates: start: 20100201

REACTIONS (1)
  - PULMONARY EMBOLISM [None]
